FAERS Safety Report 19712515 (Version 1)
Quarter: 2021Q3

REPORT INFORMATION
  Report Type: Report from Study
  Country: None (occurrence: US)
  Receive Date: 20210816
  Receipt Date: 20210816
  Transmission Date: 20211014
  Serious: No
  Sender: FDA-Public Use
  Company Number: US-SUNOVION-2018SUN005186

PATIENT
  Sex: Male

DRUGS (2)
  1. PARNATE [Concomitant]
     Active Substance: TRANYLCYPROMINE SULFATE
  2. LATUDA [Suspect]
     Active Substance: LURASIDONE HYDROCHLORIDE
     Dosage: 20 MG
     Route: 048

REACTIONS (4)
  - Fatigue [Recovering/Resolving]
  - Drug ineffective [Unknown]
  - Insomnia [Unknown]
  - Condition aggravated [Unknown]
